FAERS Safety Report 5430731-6 (Version None)
Quarter: 2007Q3

REPORT INFORMATION
  Report Type: 
  Country: None (occurrence: None)
  Receive Date: 20070830
  Receipt Date: 20061106
  Transmission Date: 20080115
  Serious: No
  Sender: FDA-Public Use
  Company Number: A0626335A

PATIENT
  Age: 28 Year
  Sex: Female

DRUGS (2)
  1. WELLBUTRIN XL [Suspect]
     Indication: DEPRESSION
     Dosage: 150MG PER DAY
     Route: 048
     Dates: start: 20061105
  2. NO CONCURRENT MEDICATION [Concomitant]

REACTIONS (3)
  - DISTURBANCE IN ATTENTION [None]
  - PALPITATIONS [None]
  - THINKING ABNORMAL [None]
